FAERS Safety Report 17399844 (Version 1)
Quarter: 2020Q1

REPORT INFORMATION
  Report Type: Spontaneous
  Country: JP (occurrence: JP)
  Receive Date: 20200211
  Receipt Date: 20200211
  Transmission Date: 20200409
  Serious: Yes (Other)
  Sender: FDA-Public Use
  Company Number: JP-HRARD-202000054

PATIENT
  Age: 77 Year
  Sex: Male

DRUGS (3)
  1. HYDROCORTISONE. [Concomitant]
     Active Substance: HYDROCORTISONE
     Indication: CORTISOL DECREASED
     Dates: start: 201307
  2. MITOTANE [Suspect]
     Active Substance: MITOTANE
     Indication: ADRENOCORTICAL CARCINOMA
     Dosage: MITOTANE RESUMED IN 2013, UNSPECIFIED DAILY DOSE, UNTIL 4 YEARS AND 4 MONTHS FROM START IN MAY 2013.
     Dates: start: 2013, end: 2017
  3. MITOTANE [Suspect]
     Active Substance: MITOTANE
     Indication: ADRENOCORTICAL CARCINOMA
     Dosage: DOSE GRADUALLY INCREASED FROM 1.5 G / DAY. THEN, DISCONTINUED TEMPORARILY.
     Dates: start: 201305, end: 201307

REACTIONS (1)
  - Cellulitis [Unknown]

NARRATIVE: CASE EVENT DATE: 201307
